FAERS Safety Report 20064624 (Version 1)
Quarter: 2021Q4

REPORT INFORMATION
  Report Type: Spontaneous
  Country: US (occurrence: US)
  Receive Date: 20211112
  Receipt Date: 20211112
  Transmission Date: 20220304
  Serious: No
  Sender: FDA-Public Use
  Company Number: US-PFIZER INC-202101374634

PATIENT
  Age: 71 Year
  Sex: Male
  Weight: 86.18 kg

DRUGS (6)
  1. CHANTIX [Suspect]
     Active Substance: VARENICLINE TARTRATE
     Indication: Smoking cessation therapy
     Dosage: UNK
     Dates: start: 202101, end: 202106
  2. TRELEGY ELLIPTA [Concomitant]
     Active Substance: FLUTICASONE FUROATE\UMECLIDINIUM BROMIDE\VILANTEROL TRIFENATATE
     Indication: Chronic obstructive pulmonary disease
     Dosage: 100 UG, 1X/DAY(1 PUFF A DAY )
  3. TRELEGY ELLIPTA [Concomitant]
     Active Substance: FLUTICASONE FUROATE\UMECLIDINIUM BROMIDE\VILANTEROL TRIFENATATE
     Dosage: 62.5UG, 1X/DAY(1 PUFF A DAY )
  4. TRELEGY ELLIPTA [Concomitant]
     Active Substance: FLUTICASONE FUROATE\UMECLIDINIUM BROMIDE\VILANTEROL TRIFENATATE
     Dosage: 25UG, 1X/DAY(1 PUFF A DAY)
  5. TAMSULOSIN HYDROCHLORIDE [Concomitant]
     Active Substance: TAMSULOSIN HYDROCHLORIDE
     Indication: Gamma radiation therapy to prostate
     Dosage: 0.4 MG, 1X/DAY(BY MOUTH)
     Route: 048
  6. FINASTERIDE [Concomitant]
     Active Substance: FINASTERIDE
     Indication: Gamma radiation therapy to prostate
     Dosage: 5 MG, 1X/DAY
     Route: 048

REACTIONS (3)
  - Rash [Not Recovered/Not Resolved]
  - Dysphonia [Unknown]
  - Productive cough [Not Recovered/Not Resolved]
